FAERS Safety Report 8815592 (Version 1)
Quarter: 2012Q4

REPORT INFORMATION
  Report Type: 
  Country: US (occurrence: US)
  Receive Date: 20120928
  Receipt Date: 20120928
  Transmission Date: 20130627
  Serious: Yes (Disabling, Other)
  Sender: FDA-Public Use
  Company Number: US-ELI_LILLY_AND_COMPANY-US201209005869

PATIENT
  Sex: Male

DRUGS (3)
  1. HUMALOG LISPRO [Suspect]
     Indication: TYPE 2 DIABETES MELLITUS
     Dosage: UNK, unknown
  2. HUMALOG LISPRO [Suspect]
     Dosage: 11 u, other
  3. LANTUS [Concomitant]
     Dosage: UNK, unknown

REACTIONS (3)
  - Colon cancer [Recovering/Resolving]
  - Nonspecific reaction [Not Recovered/Not Resolved]
  - Weight decreased [Unknown]
